FAERS Safety Report 21054825 (Version 1)
Quarter: 2022Q3

REPORT INFORMATION
  Report Type: Spontaneous
  Country: FR (occurrence: FR)
  Receive Date: 20220707
  Receipt Date: 20220707
  Transmission Date: 20221027
  Serious: Yes (Hospitalization)
  Sender: FDA-Public Use
  Company Number: None

PATIENT
  Age: 76 Year
  Sex: Male

DRUGS (1)
  1. PACLITAXEL [Suspect]
     Active Substance: PACLITAXEL
     Indication: Lip and/or oral cavity cancer
     Route: 042
     Dates: start: 20220302, end: 20220302

REACTIONS (3)
  - Hypertensive crisis [Unknown]
  - Oxygen saturation decreased [Unknown]
  - Chills [Unknown]

NARRATIVE: CASE EVENT DATE: 20220302
